FAERS Safety Report 11733738 (Version 2)
Quarter: 2015Q4

REPORT INFORMATION
  Report Type: Spontaneous
  Country: SI (occurrence: SI)
  Receive Date: 20151113
  Receipt Date: 20151201
  Transmission Date: 20160304
  Serious: Yes (Other)
  Sender: FDA-Public Use
  Company Number: SI-AMGEN-SVNSP2015119110

PATIENT
  Age: 82 Year
  Sex: Female
  Weight: 54 kg

DRUGS (1)
  1. ENBREL [Suspect]
     Active Substance: ETANERCEPT
     Indication: RHEUMATOID ARTHRITIS
     Dosage: 50 MG, WEEKLY
     Route: 058
     Dates: start: 20090107

REACTIONS (2)
  - Refractory anaemia with an excess of blasts [Not Recovered/Not Resolved]
  - Myeloproliferative disorder [Recovering/Resolving]

NARRATIVE: CASE EVENT DATE: 20150706
